FAERS Safety Report 8327420-7 (Version None)
Quarter: 2012Q2

REPORT INFORMATION
  Report Type: 
  Country: None (occurrence: None)
  Receive Date: 20120424
  Receipt Date: 20120412
  Transmission Date: 20120825
  Serious: Yes (Hospitalization, Other)
  Sender: FDA-Public Use
  Company Number: 2012PROUSA01238

PATIENT
  Age: 76 Year
  Sex: Male
  Weight: 70.3 kg

DRUGS (12)
  1. ALPRAZOLAM [Concomitant]
  2. CARVEDILOL [Concomitant]
  3. ASPIRIN [Concomitant]
  4. HYDRALAZINE HCL [Concomitant]
  5. PREDNISONE [Concomitant]
  6. AMITRIPTYLINE HCL [Concomitant]
  7. BUMETANIDE [Concomitant]
  8. FEXOFENADINE HCL [Concomitant]
  9. LISINOPRIL [Concomitant]
  10. NAPROXEN [Concomitant]
  11. PROVENGE (SIPULEUCEL-T) SUSPENSION, 250ML [Suspect]
     Indication: PROSTATE CANCER METASTATIC
     Dosage: 250 ML, SINGLE, INTRAVENOUS
     Route: 042
     Dates: start: 20120319, end: 20120319
  12. PRAVASTATIN [Concomitant]

REACTIONS (2)
  - TRANSIENT ISCHAEMIC ATTACK [None]
  - DEHYDRATION [None]
